FAERS Safety Report 17124996 (Version 1)
Quarter: 2019Q4

REPORT INFORMATION
  Report Type: Spontaneous
  Country: DE (occurrence: DE)
  Receive Date: 20191206
  Receipt Date: 20191206
  Transmission Date: 20200122
  Serious: Yes (Death, Life-Threatening, Hospitalization, Other)
  Sender: FDA-Public Use
  Company Number: DE-BAUSCH-BL-2019-063613

PATIENT
  Age: 79 Year
  Sex: Female
  Weight: 71 kg

DRUGS (47)
  1. VALSARTAN DURA [Suspect]
     Active Substance: VALSARTAN
     Indication: HYPERTENSION
     Route: 065
     Dates: start: 2017, end: 2018
  2. VALSARTAN 1 A PHARMA [Suspect]
     Active Substance: VALSARTAN
     Indication: HYPERTENSION
     Route: 048
     Dates: start: 201402, end: 2017
  3. L-THYROX HEXAL [Suspect]
     Active Substance: LEVOTHYROXINE SODIUM
     Indication: PRODUCT USED FOR UNKNOWN INDICATION
     Route: 065
     Dates: start: 2014
  4. DIOVAN [Suspect]
     Active Substance: VALSARTAN
     Dosage: 80 OT, UNK
     Route: 065
     Dates: start: 2013, end: 201302
  5. ECURAL [Concomitant]
     Active Substance: MOMETASONE
     Indication: PRODUCT USED FOR UNKNOWN INDICATION
     Route: 065
  6. MACROGOL ABZ BALANCE [Concomitant]
     Indication: PRODUCT USED FOR UNKNOWN INDICATION
     Route: 065
     Dates: start: 201902
  7. L-THYROXIN ARISTO [Concomitant]
     Indication: PRODUCT USED FOR UNKNOWN INDICATION
     Route: 065
     Dates: start: 2013
  8. PENICILLIN V AL [Concomitant]
     Indication: PRODUCT USED FOR UNKNOWN INDICATION
     Route: 065
     Dates: start: 2015
  9. AMLODIPIN 1A PHARMA [Suspect]
     Active Substance: AMLODIPINE BESYLATE
     Indication: HYPERTENSION
     Route: 065
     Dates: start: 2013, end: 2018
  10. AMLODIPINE [Suspect]
     Active Substance: AMLODIPINE BESYLATE
     Indication: HYPERTENSION
     Route: 065
     Dates: start: 2016, end: 2017
  11. FUROSEMID [Concomitant]
     Active Substance: FUROSEMIDE
     Indication: PRODUCT USED FOR UNKNOWN INDICATION
     Route: 065
  12. MOVICOL [Concomitant]
     Active Substance: POLYETHYLENE GLYCOL 3350\POTASSIUM CHLORIDE\SODIUM BICARBONATE\SODIUM CHLORIDE
     Indication: PRODUCT USED FOR UNKNOWN INDICATION
     Dosage: FORM OF ADMIN: SACHET
     Route: 065
  13. PANTOZOL [Concomitant]
     Active Substance: PANTOPRAZOLE SODIUM
     Indication: PRODUCT USED FOR UNKNOWN INDICATION
     Route: 065
  14. PANTOPRAZOL TAD [Concomitant]
     Active Substance: PANTOPRAZOLE SODIUM
     Indication: PRODUCT USED FOR UNKNOWN INDICATION
     Dosage: (MORNING)
     Route: 065
     Dates: start: 2015
  15. MOMETASON GLENMARK [Concomitant]
     Indication: PRODUCT USED FOR UNKNOWN INDICATION
     Route: 065
     Dates: start: 2018
  16. PREDNISOLONE. [Suspect]
     Active Substance: PREDNISOLONE
     Indication: PRODUCT USED FOR UNKNOWN INDICATION
     Route: 065
  17. VALSARTAN HEXAL [Suspect]
     Active Substance: VALSARTAN
     Dosage: 160 MG
     Route: 065
     Dates: start: 2014
  18. MIDAZOLAM [Concomitant]
     Active Substance: MIDAZOLAM HYDROCHLORIDE
     Indication: PRODUCT USED FOR UNKNOWN INDICATION
     Route: 065
     Dates: start: 201903
  19. EYLEA [Concomitant]
     Active Substance: AFLIBERCEPT
     Indication: PRODUCT USED FOR UNKNOWN INDICATION
     Route: 065
     Dates: start: 2014
  20. FERRO-SANOL DUODENAL [Concomitant]
     Active Substance: FERROUS GLYCINE SULFATE
     Indication: PRODUCT USED FOR UNKNOWN INDICATION
     Dosage: (MORNING)
     Route: 065
     Dates: start: 2011
  21. VALSARTAN. [Suspect]
     Active Substance: VALSARTAN
     Indication: HYPERTENSION
     Route: 065
     Dates: start: 2012
  22. L-THYROXIN [Concomitant]
     Active Substance: LEVOTHYROXINE SODIUM
     Indication: PRODUCT USED FOR UNKNOWN INDICATION
     Route: 065
     Dates: start: 2011, end: 2018
  23. TAVOR [Concomitant]
     Indication: PRODUCT USED FOR UNKNOWN INDICATION
     Dosage: 1.0 OT
     Route: 065
     Dates: start: 201902
  24. VALSARTAN HEXAL [Suspect]
     Active Substance: VALSARTAN
     Indication: HYPERTENSION
     Route: 065
     Dates: start: 2013
  25. BISOPROLOL PLUS [Suspect]
     Active Substance: BISOPROLOL FUMARATE\HYDROCHLOROTHIAZIDE
     Indication: PRODUCT USED FOR UNKNOWN INDICATION
     Route: 065
     Dates: start: 2014, end: 2018
  26. DIOVAN [Suspect]
     Active Substance: VALSARTAN
     Indication: HYPERTENSION
     Dosage: 80 OT, UNK
     Route: 065
     Dates: start: 2010, end: 2013
  27. DIOVAN [Suspect]
     Active Substance: VALSARTAN
     Dosage: 80 OT, UNKNOWN
     Route: 065
     Dates: start: 201302
  28. ADVANTAN [Concomitant]
     Active Substance: METHYLPREDNISOLONE ACEPONATE
     Indication: PRODUCT USED FOR UNKNOWN INDICATION
     Route: 065
     Dates: start: 2018
  29. BISOPROLOL COMP [Concomitant]
     Route: 065
     Dates: start: 20130415, end: 201811
  30. BISOPROLOL COMP [Concomitant]
     Dosage: 0.5 DF, QD (MORNING)
     Route: 065
     Dates: start: 201302, end: 2017
  31. DEXAGENT OPHTAL [Concomitant]
     Active Substance: DEXAMETHASONE\GENTAMICIN SULFATE
     Indication: PRODUCT USED FOR UNKNOWN INDICATION
     Route: 065
     Dates: start: 2014
  32. NOVAMINSULFON [Concomitant]
     Active Substance: METAMIZOLE
     Indication: PRODUCT USED FOR UNKNOWN INDICATION
     Route: 065
     Dates: start: 2011
  33. HYDROMORPHONE [Concomitant]
     Active Substance: HYDROMORPHONE
     Indication: PRODUCT USED FOR UNKNOWN INDICATION
     Dates: start: 201902
  34. INFECTOTRIMET [Concomitant]
     Indication: PRODUCT USED FOR UNKNOWN INDICATION
     Route: 065
     Dates: start: 2015
  35. AMLODIPIN (BESILAT) DEXCEL [Concomitant]
     Active Substance: AMLODIPINE BESYLATE
     Indication: PRODUCT USED FOR UNKNOWN INDICATION
     Dosage: UNK
     Route: 065
     Dates: start: 2013, end: 2017
  36. BISOPROLOL COMP [Concomitant]
     Indication: BLOOD PRESSURE INCREASED
     Route: 065
     Dates: start: 20130227, end: 20130414
  37. EUTHYROX [Concomitant]
     Active Substance: LEVOTHYROXINE SODIUM
     Indication: PRODUCT USED FOR UNKNOWN INDICATION
     Dosage: 125 (UNITS NOT REPORTED) OT, (MORNING)
     Route: 065
  38. FUROSEMID [Concomitant]
     Active Substance: FUROSEMIDE
     Route: 065
     Dates: start: 201903
  39. PARACETAMOL [Concomitant]
     Active Substance: ACETAMINOPHEN
     Indication: PRODUCT USED FOR UNKNOWN INDICATION
     Route: 065
     Dates: start: 201903
  40. CLEXANE [Concomitant]
     Active Substance: ENOXAPARIN SODIUM
     Indication: PRODUCT USED FOR UNKNOWN INDICATION
     Route: 065
     Dates: start: 2011
  41. HALOPERIDOL NEURAXPHARM [Concomitant]
     Indication: PRODUCT USED FOR UNKNOWN INDICATION
     Route: 065
     Dates: start: 201902
  42. FENTANYL CT [Concomitant]
     Indication: PRODUCT USED FOR UNKNOWN INDICATION
     Dosage: 12 UG/HR
     Route: 065
     Dates: start: 201903
  43. DIOVAN [Suspect]
     Active Substance: VALSARTAN
     Route: 065
     Dates: start: 201302
  44. MOMETASONFUROAAT GLENMARK [Concomitant]
     Indication: PRODUCT USED FOR UNKNOWN INDICATION
     Route: 065
     Dates: start: 2015
  45. IBUPROFEN AL [Concomitant]
     Active Substance: IBUPROFEN
     Indication: PRODUCT USED FOR UNKNOWN INDICATION
     Dosage: MORNING AND EVENING
     Route: 065
     Dates: start: 2011
  46. PANTOPRAZOLE [Concomitant]
     Active Substance: PANTOPRAZOLE
     Indication: PRODUCT USED FOR UNKNOWN INDICATION
     Route: 065
     Dates: start: 201901
  47. DIGIMERCK MINOR [Concomitant]
     Active Substance: DIGITOXIN
     Indication: PRODUCT USED FOR UNKNOWN INDICATION
     Dosage: 0.07 OT
     Route: 065
     Dates: start: 201901

REACTIONS (76)
  - Erysipelas [Unknown]
  - Personality change [Unknown]
  - Right ventricular failure [Unknown]
  - Steroid diabetes [Unknown]
  - Left ventricular failure [Unknown]
  - General physical health deterioration [Unknown]
  - Peripheral swelling [Unknown]
  - Aphthous ulcer [Unknown]
  - Tendon rupture [Unknown]
  - Dizziness [Unknown]
  - Arthralgia [Recovering/Resolving]
  - Nocturia [Unknown]
  - Brain neoplasm [Unknown]
  - Basal cell carcinoma [Unknown]
  - Clear cell renal cell carcinoma [Not Recovered/Not Resolved]
  - Dysuria [Unknown]
  - Adenoma benign [Unknown]
  - Colon adenoma [Unknown]
  - Pustule [Unknown]
  - Disturbance in attention [Unknown]
  - Visual impairment [Unknown]
  - Bradycardia [Unknown]
  - Blood pressure increased [Unknown]
  - Inflammatory marker increased [Unknown]
  - Insomnia [Unknown]
  - Ventricular hypertrophy [Unknown]
  - Vomiting [Unknown]
  - Gait disturbance [Unknown]
  - Cataract [Unknown]
  - Swelling [Unknown]
  - Dermatosis [Unknown]
  - Colitis [Unknown]
  - Fall [Unknown]
  - Diarrhoea [Unknown]
  - Tachycardia [Unknown]
  - Functional gastrointestinal disorder [Unknown]
  - Death [Fatal]
  - Atrial fibrillation [Unknown]
  - Urinary retention [Unknown]
  - Metastases to central nervous system [Unknown]
  - Gastroenteritis [Unknown]
  - Fatigue [Unknown]
  - Blood glucose increased [Unknown]
  - Meniscal degeneration [Unknown]
  - Joint swelling [Unknown]
  - Tinnitus [Unknown]
  - Melanocytic naevus [Unknown]
  - Brain oedema [Unknown]
  - Erythema [Unknown]
  - Pain in extremity [Unknown]
  - Varicose vein [Unknown]
  - Defaecation disorder [Unknown]
  - Haemorrhoids [Unknown]
  - Fibroma [Unknown]
  - Restlessness [Unknown]
  - Rash [Unknown]
  - Asthenia [Unknown]
  - Dyspnoea exertional [Unknown]
  - Cognitive disorder [Unknown]
  - Chronic kidney disease [Unknown]
  - Metastases to lung [Not Recovered/Not Resolved]
  - Weight increased [Recovering/Resolving]
  - Oedema peripheral [Recovering/Resolving]
  - Urinary tract infection [Unknown]
  - Drug intolerance [Unknown]
  - Productive cough [Unknown]
  - Anaemia [Unknown]
  - Cerumen impaction [Unknown]
  - Pruritus [Unknown]
  - Osteoarthritis [Unknown]
  - Dyspnoea [Unknown]
  - Large intestine polyp [Unknown]
  - Ventricular extrasystoles [Unknown]
  - Abdominal pain [Unknown]
  - Ischaemia [Unknown]
  - Drug ineffective [Unknown]

NARRATIVE: CASE EVENT DATE: 2008
